FAERS Safety Report 4906478-9 (Version None)
Quarter: 2006Q1

REPORT INFORMATION
  Report Type: 
  Country: None (occurrence: None)
  Receive Date: 20060209
  Receipt Date: 20060106
  Transmission Date: 20060701
  Serious: Yes (Hospitalization)
  Sender: FDA-Public Use
  Company Number: US-MERCK-0601USA00801

PATIENT
  Age: 53 Year
  Sex: Female
  Weight: 68 kg

DRUGS (4)
  1. VIOXX [Suspect]
     Indication: ARTHRITIS
     Route: 048
     Dates: start: 20010212, end: 20020101
  2. VIOXX [Suspect]
     Route: 048
     Dates: start: 20020101, end: 20041201
  3. ATENOLOL [Concomitant]
     Route: 065
  4. INDAPAMIDE [Concomitant]
     Route: 065

REACTIONS (6)
  - ADVERSE EVENT [None]
  - CARDIAC DISORDER [None]
  - CEREBROVASCULAR ACCIDENT [None]
  - CHEST PAIN [None]
  - FACIAL DYSMORPHISM [None]
  - HYPERTENSION [None]
